FAERS Safety Report 8602026-0 (Version None)
Quarter: 2012Q3

REPORT INFORMATION
  Report Type: 
  Country: None (occurrence: None)
  Receive Date: 20120817
  Receipt Date: 20120813
  Transmission Date: 20120928
  Serious: Yes (Other)
  Sender: FDA-Public Use
  Company Number: BE-PFIZER INC-2012196925

PATIENT
  Sex: Male

DRUGS (1)
  1. TOVIAZ [Suspect]
     Route: 048

REACTIONS (2)
  - SOMNOLENCE [None]
  - FATIGUE [None]
